FAERS Safety Report 20863199 (Version 1)
Quarter: 2022Q2

REPORT INFORMATION
  Report Type: Spontaneous
  Country: GB (occurrence: GB)
  Receive Date: 20220523
  Receipt Date: 20220523
  Transmission Date: 20220721
  Serious: Yes (Life-Threatening, Hospitalization, Disabling, Other)
  Sender: FDA-Public Use
  Company Number: GB-ORGANON-O2205GBR000856

PATIENT
  Age: 31 Year
  Sex: Female
  Weight: 63.5 kg

DRUGS (77)
  1. TRAMADOL [Suspect]
     Active Substance: TRAMADOL
     Indication: Neck pain
     Dosage: 1 DOSAGE FORM START DATE: 25-JUL-2011
     Route: 065
  2. TRAMADOL [Suspect]
     Active Substance: TRAMADOL
     Indication: Analgesic therapy
     Dosage: 20 MILLIGRAM START DATE:25-JUL-2011
     Route: 065
  3. TRAMADOL [Suspect]
     Active Substance: TRAMADOL
     Indication: Back pain
     Dosage: 4 DOSAGE FORM
     Route: 048
  4. TRAMADOL [Suspect]
     Active Substance: TRAMADOL
     Dosage: 4 MILLIGRAM, QD (4 MG, ONCE PER DAY START DATE:01-DEC-2008
     Route: 048
     Dates: end: 20101201
  5. TRAMADOL [Suspect]
     Active Substance: TRAMADOL
     Dosage: 5 MILLIGRAM
     Route: 044
     Dates: start: 1995, end: 1996
  6. TRAMADOL [Suspect]
     Active Substance: TRAMADOL
     Dosage: UNSPECIFIED, 50-100, 4 CYCLICAL START DATE: 22-JUL-2008
     Route: 048
  7. TRAMADOL [Suspect]
     Active Substance: TRAMADOL
     Dosage: UNK, UNK (4 UNK, QD) START DATE: 22-JUL-2008
     Route: 048
  8. TRAMADOL [Suspect]
     Active Substance: TRAMADOL
     Dosage: DISCONTINUED AFTER 4 OR 5 DAYS START DATE: 01-DEC-2008
     Route: 048
     Dates: end: 20101210
  9. TRAMADOL [Suspect]
     Active Substance: TRAMADOL
     Dosage: 4 CYCLICAL QD START DATE: 22-JUL-2008
     Route: 048
  10. TRAMADOL [Suspect]
     Active Substance: TRAMADOL
     Dosage: UNK START DATE: 2008
     Dates: end: 2009
  11. TRAMADOL [Suspect]
     Active Substance: TRAMADOL
     Dosage: 8 MILLIGRAM START DATE: 25-JUL-2011
     Route: 065
  12. TRAMADOL [Suspect]
     Active Substance: TRAMADOL
     Dosage: UNK, UNK (4 OT, QD) START DATE: 22-JUL-2008
     Route: 048
  13. TRAMADOL [Suspect]
     Active Substance: TRAMADOL
     Dosage: UNK START DATE:01-DEC-2008
     Route: 048
     Dates: end: 20101201
  14. DOMPERIDONE [Suspect]
     Active Substance: DOMPERIDONE
     Indication: Product used for unknown indication
     Dosage: UNK
  15. DIAZEPAM [Suspect]
     Active Substance: DIAZEPAM
     Indication: Serotonin syndrome
     Dosage: 20 MG, QD (20 MG, QD 5 MILLIGRAM, QID START DATE: 25-JUL-2011
     Route: 065
  16. DIAZEPAM [Suspect]
     Active Substance: DIAZEPAM
     Indication: Depression
     Dosage: 20 MG, QD 5 MILLIGRAM, QID START DATE: 20 MG, QD (20 MG, QD 5 MILLIGRAM, QID START DATE: 25-JUL-2011
     Route: 048
     Dates: end: 20110725
  17. DIAZEPAM [Suspect]
     Active Substance: DIAZEPAM
     Indication: Muscle spasms
     Dosage: 8 MILLIGRAM, QD (8 MG ONCE PER DAY) START DATE:25-JUL-2011
     Route: 065
  18. DIAZEPAM [Suspect]
     Active Substance: DIAZEPAM
     Dosage: 8 MG, UNK (EVERY 24 HOURS)
     Route: 048
  19. OMEPRAZOLE [Suspect]
     Active Substance: OMEPRAZOLE
     Indication: Dyspepsia
     Dosage: 20 MILLIGRAM, QD (20 MG, ONCE PER DAY START DATE: 25-MAY-2011
     Route: 048
  20. OMEPRAZOLE [Suspect]
     Active Substance: OMEPRAZOLE
     Dosage: 20 MILLIGRAM, QD (20 MG, ONCE PER DAY)
     Route: 048
  21. PROCYCLIDINE [Suspect]
     Active Substance: PROCYCLIDINE
     Indication: Extrapyramidal disorder
     Dosage: 5 MILLIGRAM, QD (5 MG, ONCE PER DAY)
     Route: 048
     Dates: start: 1995, end: 1996
  22. PROCYCLIDINE [Suspect]
     Active Substance: PROCYCLIDINE
     Indication: Oculogyric crisis
     Dosage: 20 MILLIGRAM START DATE: 4-MAR-2011
     Route: 048
     Dates: end: 20110506
  23. PROCYCLIDINE [Suspect]
     Active Substance: PROCYCLIDINE
     Dosage: 5 MILLIGRAM, QD (5 MG, ONCE PER DAY) START DATE: 03-MAY-2011
     Route: 048
     Dates: end: 20110510
  24. PROCYCLIDINE [Suspect]
     Active Substance: PROCYCLIDINE
     Dosage: 15 MILLIGRAM, QD (15 MG, ONCE PER DAY START DATE:03-MAY-2011
     Route: 048
     Dates: end: 20110510
  25. PROCYCLIDINE [Suspect]
     Active Substance: PROCYCLIDINE
     Dosage: 20 MILLIGRAM, QD (1ST TRIMESTER) START DATE: 15-APR-2011
     Route: 065
  26. PROCYCLIDINE [Suspect]
     Active Substance: PROCYCLIDINE
     Dosage: UNK START DATE:15-APR-2011
     Route: 065
  27. QUETIAPINE [Suspect]
     Active Substance: QUETIAPINE
     Indication: Psychotic disorder
     Dosage: UNK
  28. QUETIAPINE [Suspect]
     Active Substance: QUETIAPINE
     Dosage: 300 MILLIGRAM START DATE:24-FEB-2011
     Route: 048
     Dates: end: 20110506
  29. QUETIAPINE [Suspect]
     Active Substance: QUETIAPINE
     Dosage: UNK
     Route: 048
     Dates: start: 19990801, end: 20110706
  30. QUETIAPINE [Suspect]
     Active Substance: QUETIAPINE
     Dosage: UNK
     Route: 048
     Dates: start: 19990801, end: 20110706
  31. MIRTAZAPINE [Suspect]
     Active Substance: MIRTAZAPINE
     Indication: Depression
     Dosage: 30 MILLIGRAM, QD (30 MG, ONCE PER DAY) START DATE:07-OCT-2010
     Route: 048
     Dates: end: 20101012
  32. MIRTAZAPINE [Suspect]
     Active Substance: MIRTAZAPINE
     Dosage: 15 MILLIGRAM, QD START DATE:24-FEB-2011
     Route: 065
     Dates: end: 20110506
  33. MIRTAZAPINE [Suspect]
     Active Substance: MIRTAZAPINE
     Dosage: 15 MILLIGRAM, BID (15 MG, 2 TIMES PER DAY) START DATE:23-SEP-2010
     Route: 048
     Dates: end: 20101108
  34. MIRTAZAPINE [Suspect]
     Active Substance: MIRTAZAPINE
     Dosage: 30 MILLIGRAM, QD (30 MG, ONCE PER DAY)
     Route: 048
  35. MIRTAZAPINE [Suspect]
     Active Substance: MIRTAZAPINE
     Dosage: 30 MILLIGRAM (UNSURE) START DATE:23-SEP-2010
     Route: 048
     Dates: end: 20101108
  36. MIRTAZAPINE [Suspect]
     Active Substance: MIRTAZAPINE
     Dosage: 30 MILLIGRAM, QD START DATE:24-FEB-2011
     Route: 065
     Dates: end: 20110506
  37. AMITRIPTYLINE HYDROCHLORIDE [Suspect]
     Active Substance: AMITRIPTYLINE HYDROCHLORIDE
     Indication: Muscle spasms
     Dosage: 25 MILLIGRAM, QD (25 MG, ONCE PER DAY (25 MG AT NIGHT))
     Route: 065
  38. AMITRIPTYLINE HYDROCHLORIDE [Suspect]
     Active Substance: AMITRIPTYLINE HYDROCHLORIDE
     Indication: Serotonin syndrome
     Dosage: AT NIGHT
     Route: 065
  39. AMITRIPTYLINE HYDROCHLORIDE [Suspect]
     Active Substance: AMITRIPTYLINE HYDROCHLORIDE
     Indication: Drug withdrawal syndrome
     Dosage: AT NIGHT
     Route: 065
  40. AMITRIPTYLINE HYDROCHLORIDE [Suspect]
     Active Substance: AMITRIPTYLINE HYDROCHLORIDE
     Indication: Neuralgia
  41. CLONAZEPAM [Suspect]
     Active Substance: CLONAZEPAM
     Indication: Sedation
     Dosage: UNK, UNK (UNSURE) START DATE:24-FEB-2011
     Route: 048
     Dates: end: 20110410
  42. CLONAZEPAM [Suspect]
     Active Substance: CLONAZEPAM
     Dosage: UNK, UNK (UNSURE)
     Route: 048
     Dates: end: 20110410
  43. CODEINE PHOSPHATE [Suspect]
     Active Substance: CODEINE PHOSPHATE
     Indication: Serotonin syndrome
     Dosage: UNK START DATE:24-FEB-2011
     Dates: end: 20110410
  44. CODEINE PHOSPHATE [Suspect]
     Active Substance: CODEINE PHOSPHATE
     Indication: Analgesic therapy
     Dosage: UNK START DATE:2008
     Route: 048
     Dates: end: 2008
  45. CODEINE PHOSPHATE [Suspect]
     Active Substance: CODEINE PHOSPHATE
     Dosage: UNK
     Route: 048
     Dates: start: 2002, end: 2002
  46. CODEINE PHOSPHATE [Suspect]
     Active Substance: CODEINE PHOSPHATE
     Dosage: 24-EVERY HOUR START DATE:15-JUN-2011
     Route: 048
     Dates: end: 20110723
  47. CODEINE PHOSPHATE [Suspect]
     Active Substance: CODEINE PHOSPHATE
     Dosage: 15-30 MG START DATE:15-JUN-2011
     Route: 048
     Dates: end: 20110723
  48. LORAZEPAM [Suspect]
     Active Substance: LORAZEPAM
     Indication: Sedation
     Dosage: 1 MILLIGRAM, QID (1 MG, 4 TIMES PER DAY) START DATE:24-FEB-2011
     Route: 048
     Dates: end: 20110410
  49. LORAZEPAM [Suspect]
     Active Substance: LORAZEPAM
     Dosage: 1 MILLIGRAM START DATE:24-FEB-2011
     Route: 048
     Dates: end: 20110410
  50. LORAZEPAM [Suspect]
     Active Substance: LORAZEPAM
     Dosage: 1 MILLIGRAM, QID (1 MG, 4 TIMES PER DAY)START DATE24-FEB-2011
     Route: 048
     Dates: end: 20110410
  51. LORAZEPAM [Suspect]
     Active Substance: LORAZEPAM
     Dosage: 4 MILLIGRAM START DATE:24-FEB-2011
     Route: 048
     Dates: end: 20110404
  52. LORAZEPAM [Suspect]
     Active Substance: LORAZEPAM
     Dosage: 1 MILLIGRAM START DATE:23-MAY-2011
     Route: 048
     Dates: end: 20110627
  53. LORAZEPAM [Suspect]
     Active Substance: LORAZEPAM
     Dosage: 1 MILLIGRAM, QID (1 MG, 4 TIMES PER DAY) START DATE:24-FEB-2011
     Route: 048
     Dates: end: 20110410
  54. LORAZEPAM [Suspect]
     Active Substance: LORAZEPAM
     Dosage: 1 MILLIGRAM, QID (1 MG, 4 TIMES PER DAY)
     Route: 048
  55. LORAZEPAM [Suspect]
     Active Substance: LORAZEPAM
     Dosage: 4 MILLIGRAM, QD (4 MG, ONCE PER DAY) START DATE:23-MAY-2011
     Route: 048
     Dates: end: 20110627
  56. LORAZEPAM [Suspect]
     Active Substance: LORAZEPAM
     Dosage: UNK START DATE:02-FEB-2011
     Route: 048
     Dates: end: 20110410
  57. LORAZEPAM [Suspect]
     Active Substance: LORAZEPAM
     Dosage: 1 MILLIGRAM START DATE:25-JUL-2011
     Route: 048
  58. PAROXETINE HYDROCHLORIDE [Suspect]
     Active Substance: PAROXETINE HYDROCHLORIDE
     Indication: Depression
     Dosage: UNK
     Route: 048
     Dates: start: 1999
  59. PAROXETINE HYDROCHLORIDE [Suspect]
     Active Substance: PAROXETINE HYDROCHLORIDE
     Indication: Post-traumatic stress disorder
     Dosage: 40 MILLIGRAM
     Route: 048
     Dates: start: 19990801, end: 20110706
  60. PAROXETINE HYDROCHLORIDE [Suspect]
     Active Substance: PAROXETINE HYDROCHLORIDE
     Dosage: 60 MILLIGRAM, QD (60 MG, ONCE PER DAY)
     Route: 048
     Dates: start: 1997, end: 201105
  61. PAROXETINE HYDROCHLORIDE [Suspect]
     Active Substance: PAROXETINE HYDROCHLORIDE
     Dosage: 20 MILLIGRAM, TID START DATE:MAY-2011
     Route: 048
     Dates: end: 20110706
  62. PAROXETINE HYDROCHLORIDE [Suspect]
     Active Substance: PAROXETINE HYDROCHLORIDE
     Dosage: 60 MILLIGRAM, QD (60 MG, ONCE PER DAY)
     Route: 048
     Dates: start: 19990801, end: 201105
  63. PAROXETINE HYDROCHLORIDE [Suspect]
     Active Substance: PAROXETINE HYDROCHLORIDE
     Dosage: UNK START DATE:DEC-2010
  64. PAROXETINE HYDROCHLORIDE [Suspect]
     Active Substance: PAROXETINE HYDROCHLORIDE
     Dosage: UNK
     Route: 048
     Dates: start: 1996, end: 201105
  65. PAROXETINE HYDROCHLORIDE [Suspect]
     Active Substance: PAROXETINE HYDROCHLORIDE
     Dosage: 40 MILLIGRAM, QD (40 MG, ONCE PER DAY)
     Route: 048
     Dates: start: 19990801, end: 20110706
  66. PAROXETINE HYDROCHLORIDE [Suspect]
     Active Substance: PAROXETINE HYDROCHLORIDE
     Dosage: 20 MILLIGRAM, TID (20 MG, 3 TIMES PER DAY)
     Route: 048
     Dates: start: 1997, end: 201105
  67. PHOSPHORUS [Suspect]
     Active Substance: PHOSPHORUS
     Indication: Product used for unknown indication
     Dosage: UNK
  68. PAROXETINE HYDROCHLORIDE [Suspect]
     Active Substance: PAROXETINE HYDROCHLORIDE
     Indication: Product used for unknown indication
     Dosage: 40 MILLIGRAM, QD (40 MG, ONCE PER DAY)
     Route: 048
  69. PAROXETINE HYDROCHLORIDE [Suspect]
     Active Substance: PAROXETINE HYDROCHLORIDE
     Dosage: INTERRUPTED START DATE:MAY-2011
     Route: 048
     Dates: end: 20110706
  70. PAROXETINE HYDROCHLORIDE [Suspect]
     Active Substance: PAROXETINE HYDROCHLORIDE
     Dosage: 20 MILLIGRAM, TID (20 MG, 3 TIMES PER DAY (NTERRUPTED))
     Route: 048
     Dates: start: 19990801, end: 201105
  71. PAROXETINE HYDROCHLORIDE [Suspect]
     Active Substance: PAROXETINE HYDROCHLORIDE
     Dosage: 60 MILLIGRAM, QD (60 MG, ONCE PER DAY (20 MG, THREE TIMES PER DAY))
     Route: 048
     Dates: start: 19990801, end: 201105
  72. PAROXETINE HYDROCHLORIDE [Suspect]
     Active Substance: PAROXETINE HYDROCHLORIDE
     Dosage: UNK START DATE:DEC-2010
     Route: 048
  73. PAROXETINE HYDROCHLORIDE [Suspect]
     Active Substance: PAROXETINE HYDROCHLORIDE
     Dosage: 20 MILLIGRAM (INTERRUPTED)
     Route: 048
     Dates: start: 1997
  74. PAROXETINE HYDROCHLORIDE [Suspect]
     Active Substance: PAROXETINE HYDROCHLORIDE
     Dosage: 20 MILLIGRAM, QD START DATE: 2011
     Route: 048
     Dates: end: 20110706
  75. PAROXETINE HYDROCHLORIDE [Suspect]
     Active Substance: PAROXETINE HYDROCHLORIDE
     Dosage: INTERRUPTED START DATE:DEC-2008
     Route: 048
     Dates: end: 201012
  76. PAROXETINE HYDROCHLORIDE [Suspect]
     Active Substance: PAROXETINE HYDROCHLORIDE
     Dosage: INTERRUPTED
     Route: 048
     Dates: start: 1997, end: 201105
  77. PAROXETINE HYDROCHLORIDE [Suspect]
     Active Substance: PAROXETINE HYDROCHLORIDE
     Dosage: UNK
     Route: 048
     Dates: start: 1999

REACTIONS (89)
  - Mania [Unknown]
  - Tremor [Not Recovered/Not Resolved]
  - Feeling jittery [Unknown]
  - Headache [Unknown]
  - Sleep disorder [Unknown]
  - Anxiety [Unknown]
  - Agitation [Unknown]
  - Urinary retention [Unknown]
  - Visual impairment [Unknown]
  - Blood sodium decreased [Unknown]
  - Asthenia [Unknown]
  - Disturbance in attention [Unknown]
  - Feeling of despair [Unknown]
  - Emotional disorder [Unknown]
  - Depression [Unknown]
  - Decreased appetite [Unknown]
  - Derealisation [Not Recovered/Not Resolved]
  - Vomiting [Unknown]
  - Hyperhidrosis [Unknown]
  - Delirium [Unknown]
  - H1N1 influenza [Unknown]
  - Pyrexia [Unknown]
  - Disorientation [Not Recovered/Not Resolved]
  - Skin discolouration [Not Recovered/Not Resolved]
  - Dyspnoea [Unknown]
  - Arthralgia [Unknown]
  - Serotonin syndrome [Not Recovered/Not Resolved]
  - Menstrual disorder [Unknown]
  - Dissociation [Not Recovered/Not Resolved]
  - Hallucinations, mixed [Unknown]
  - Dyskinesia [Unknown]
  - Pruritus [Unknown]
  - Psychotic disorder [Recovered/Resolved]
  - Parosmia [Unknown]
  - Tachycardia [Unknown]
  - Diarrhoea [Unknown]
  - Incontinence [Not Recovered/Not Resolved]
  - Swelling face [Unknown]
  - Vision blurred [Unknown]
  - Hypoaesthesia [Not Recovered/Not Resolved]
  - Gastric pH decreased [Unknown]
  - Dizziness [Unknown]
  - Heart rate increased [Unknown]
  - Sensory loss [Unknown]
  - Balance disorder [Unknown]
  - Drooling [Unknown]
  - Cogwheel rigidity [Unknown]
  - Tinnitus [Unknown]
  - Gait disturbance [Unknown]
  - Neuroleptic malignant syndrome [Unknown]
  - Mydriasis [Unknown]
  - Pallor [Unknown]
  - Fatigue [Not Recovered/Not Resolved]
  - Illness [Unknown]
  - Speech disorder [Unknown]
  - Mood swings [Unknown]
  - Paralysis [Unknown]
  - Swollen tongue [Unknown]
  - Feeling of body temperature change [Unknown]
  - Muscle rigidity [Unknown]
  - Nightmare [Unknown]
  - Dystonia [Unknown]
  - Musculoskeletal stiffness [Not Recovered/Not Resolved]
  - Hypoaesthesia oral [Unknown]
  - Seizure [Unknown]
  - Toxicity to various agents [Unknown]
  - Aphasia [Not Recovered/Not Resolved]
  - Drug withdrawal syndrome [Unknown]
  - Premature labour [Unknown]
  - Suicidal ideation [Not Recovered/Not Resolved]
  - Muscle disorder [Unknown]
  - Muscle spasms [Not Recovered/Not Resolved]
  - Limb injury [Unknown]
  - Somnolence [Not Recovered/Not Resolved]
  - Paraesthesia [Unknown]
  - Contusion [Unknown]
  - Restless legs syndrome [Not Recovered/Not Resolved]
  - Therapeutic product ineffective [Unknown]
  - Cyanosis [Unknown]
  - Eye pain [Unknown]
  - Depersonalisation/derealisation disorder [Not Recovered/Not Resolved]
  - Confusional state [Not Recovered/Not Resolved]
  - Restlessness [Not Recovered/Not Resolved]
  - Schizophrenia [Unknown]
  - Drug interaction [Unknown]
  - Drug ineffective [Unknown]
  - Off label use [Unknown]
  - Exposure during pregnancy [Unknown]
  - Maternal exposure during pregnancy [Unknown]

NARRATIVE: CASE EVENT DATE: 20030101
